FAERS Safety Report 23972758 (Version 1)
Quarter: 2024Q2

REPORT INFORMATION
  Report Type: Spontaneous
  Country: US (occurrence: None)
  Receive Date: 20240613
  Receipt Date: 20240613
  Transmission Date: 20240715
  Serious: Yes (Hospitalization, Disabling, Other)
  Sender: FDA-Public Use
  Company Number: None

PATIENT
  Age: 66 Year
  Sex: Female
  Weight: 64.86 kg

DRUGS (10)
  1. RECLAST [Suspect]
     Active Substance: ZOLEDRONIC ACID
     Indication: Osteoporosis
     Dosage: I.V INFUSION
     Route: 042
     Dates: start: 20240415, end: 20240415
  2. STERIOD EYE DROPS [Concomitant]
  3. PANTOPRAZOLE [Concomitant]
     Active Substance: PANTOPRAZOLE
  4. PREDNISONE [Concomitant]
     Active Substance: PREDNISONE
  5. LIPITOR [Concomitant]
     Active Substance: ATORVASTATIN CALCIUM
  6. COLESTIPOL HYDROCHLORIDE [Concomitant]
     Active Substance: COLESTIPOL HYDROCHLORIDE
  7. VITAMIN D3 [Concomitant]
     Active Substance: CHOLECALCIFEROL
  8. VITAMIN B12 [Concomitant]
     Active Substance: CYANOCOBALAMIN
  9. CALCIUM [Concomitant]
     Active Substance: CALCIUM
  10. 5 LOXIN BOSWEILLIA SERRATA EXTRACT [Concomitant]

REACTIONS (8)
  - Illness [None]
  - Arthralgia [None]
  - Eye pain [None]
  - Vomiting [None]
  - Diplopia [None]
  - Blindness unilateral [None]
  - Dysgeusia [None]
  - Infusion related reaction [None]

NARRATIVE: CASE EVENT DATE: 20240416
